FAERS Safety Report 8514939-9 (Version None)
Quarter: 2012Q3

REPORT INFORMATION
  Report Type: 
  Country: None (occurrence: None)
  Receive Date: 20120717
  Receipt Date: 20120710
  Transmission Date: 20120928
  Serious: Yes (Other)
  Sender: FDA-Public Use
  Company Number: JP-ASTRAZENECA-2012SE47631

PATIENT
  Age: 49 Year
  Sex: Male

DRUGS (2)
  1. CASODEX [Suspect]
     Indication: PROSTATE CANCER
     Route: 048
     Dates: start: 20110101, end: 20120601
  2. LEUPROLIDE ACETATE [Suspect]
     Route: 058
     Dates: start: 20110101, end: 20120601

REACTIONS (1)
  - HEPATIC FUNCTION ABNORMAL [None]
